FAERS Safety Report 8201332-1 (Version None)
Quarter: 2012Q1

REPORT INFORMATION
  Report Type: 
  Country: None (occurrence: None)
  Receive Date: 20120312
  Receipt Date: 20120305
  Transmission Date: 20120608
  Serious: Yes (Death, Other)
  Sender: FDA-Public Use
  Company Number: PHEH2012US003996

PATIENT
  Sex: Male
  Weight: 83.175 kg

DRUGS (3)
  1. CISPLATIN [Concomitant]
  2. AFINITOR [Suspect]
     Indication: PANCREATIC NEUROENDOCRINE TUMOUR METASTATIC
     Dosage: 10 MG, QD
     Route: 048
     Dates: start: 20120202, end: 20120210
  3. ETOPOSIDE [Concomitant]

REACTIONS (10)
  - NEOPLASM PROGRESSION [None]
  - LIVER FUNCTION TEST ABNORMAL [None]
  - NAUSEA [None]
  - ASCITES [None]
  - METASTASES TO LIVER [None]
  - MUCOSAL INFLAMMATION [None]
  - NEOPLASM MALIGNANT [None]
  - METASTASES TO PERITONEUM [None]
  - LYMPHADENOPATHY [None]
  - VOMITING [None]
